FAERS Safety Report 10046803 (Version 1)
Quarter: 2014Q1

REPORT INFORMATION
  Report Type: Spontaneous
  Country: FR (occurrence: FR)
  Receive Date: 20140331
  Receipt Date: 20140331
  Transmission Date: 20141002
  Serious: Yes (Other)
  Sender: FDA-Public Use
  Company Number: FR-CELGENEUS-056-21880-14023767

PATIENT
  Sex: 0

DRUGS (23)
  1. REVLIMID [Suspect]
     Indication: PLASMA CELL MYELOMA
     Route: 048
  2. REVLIMID [Suspect]
     Indication: CHRONIC LYMPHOCYTIC LEUKAEMIA
  3. REVLIMID [Suspect]
     Indication: ACUTE MYELOID LEUKAEMIA
  4. REVLIMID [Suspect]
     Indication: MYELODYSPLASTIC SYNDROME
  5. REVLIMID [Suspect]
     Indication: CHRONIC MYELOMONOCYTIC LEUKAEMIA
  6. REVLIMID [Suspect]
     Indication: T-CELL LYMPHOMA
  7. REVLIMID [Suspect]
     Indication: PANCREATIC CARCINOMA
  8. REVLIMID [Suspect]
     Indication: PLASMA CELL LEUKAEMIA
  9. REVLIMID [Suspect]
     Indication: MANTLE CELL LYMPHOMA
  10. REVLIMID [Suspect]
     Indication: WALDENSTROM^S MACROGLOBULINAEMIA
  11. REVLIMID [Suspect]
     Indication: NON-HODGKIN^S LYMPHOMA
  12. REVLIMID [Suspect]
     Indication: NEUROBLASTOMA
  13. REVLIMID [Suspect]
     Indication: BONE MARROW POLYMORPHONUCLEAR LEUKOCYTE COUNT INCREASED
  14. REVLIMID [Suspect]
     Indication: RENAL CELL CARCINOMA
  15. REVLIMID [Suspect]
     Indication: MALIGNANT MELANOMA
  16. REVLIMID [Suspect]
     Indication: PROSTATE CANCER
  17. REVLIMID [Suspect]
     Indication: HEPATOCELLULAR CARCINOMA
  18. VIDAZA [Suspect]
     Indication: ACUTE MYELOID LEUKAEMIA
     Route: 065
  19. DEXAMETHASONE [Concomitant]
     Indication: PLASMA CELL MYELOMA
     Route: 065
  20. PREDNISONE [Concomitant]
     Indication: PLASMA CELL MYELOMA
     Route: 065
  21. MELPHALAN [Concomitant]
     Indication: PLASMA CELL MYELOMA
     Route: 065
  22. BORTEZOMIB [Concomitant]
     Indication: PLASMA CELL MYELOMA
     Route: 065
  23. RITUXIMAB [Concomitant]
     Indication: CHRONIC LYMPHOCYTIC LEUKAEMIA
     Route: 065

REACTIONS (14)
  - Graft versus host disease [Unknown]
  - Bone marrow failure [Unknown]
  - Embolism [Unknown]
  - Tumour flare [Unknown]
  - Neutropenia [Unknown]
  - Thrombocytopenia [Unknown]
  - Leukopenia [Unknown]
  - Anaemia [Unknown]
  - Infection [Unknown]
  - Fatigue [Unknown]
  - Nausea [Unknown]
  - Diarrhoea [Unknown]
  - Headache [Unknown]
  - Rash [Unknown]
